FAERS Safety Report 5961933-8 (Version None)
Quarter: 2008Q4

REPORT INFORMATION
  Report Type: 
  Country: None (occurrence: None)
  Receive Date: 20081121
  Receipt Date: 20081112
  Transmission Date: 20090506
  Serious: Yes (Death)
  Sender: FDA-Public Use
  Company Number: US-CELGENEUS-163-21880-08110491

PATIENT
  Sex: Female

DRUGS (2)
  1. REVLIMID [Suspect]
     Indication: MULTIPLE MYELOMA
     Route: 048
     Dates: start: 20071004, end: 20080101
  2. REVLIMID [Suspect]
     Route: 048
     Dates: start: 20070130, end: 20070701

REACTIONS (2)
  - CARDIAC FAILURE [None]
  - PNEUMONIA [None]
